FAERS Safety Report 12878283 (Version 1)
Quarter: 2016Q4

REPORT INFORMATION
  Report Type: Spontaneous
  Country: FR (occurrence: FR)
  Receive Date: 20161024
  Receipt Date: 20161024
  Transmission Date: 20170207
  Serious: Yes (Hospitalization)
  Sender: FDA-Public Use
  Company Number: FR-ASCEND THERAPEUTICS-1058696

PATIENT
  Age: 31 Year
  Sex: Male

DRUGS (2)
  1. LUTERAN (CHLORMADINONE ACETATE) [Concomitant]
     Route: 048
     Dates: start: 20150201, end: 20160101
  2. ESTROGEL [Suspect]
     Active Substance: ESTRADIOL
     Indication: FEMINISATION ACQUIRED
     Route: 003
     Dates: start: 20150812, end: 20160601

REACTIONS (3)
  - Pulmonary embolism [Recovered/Resolved]
  - Arterial thrombosis [Recovered/Resolved]
  - Deep vein thrombosis [Recovered/Resolved]

NARRATIVE: CASE EVENT DATE: 20160111
